FAERS Safety Report 15301337 (Version 11)
Quarter: 2020Q4

REPORT INFORMATION
  Report Type: Spontaneous
  Country: US (occurrence: US)
  Receive Date: 20180821
  Receipt Date: 20201029
  Transmission Date: 20210113
  Serious: Yes (Hospitalization, Other)
  Sender: FDA-Public Use
  Company Number: US-PFIZER INC-2018336644

PATIENT
  Age: 81 Year
  Sex: Female
  Weight: 50 kg

DRUGS (9)
  1. TUMS [Concomitant]
     Active Substance: CALCIUM CARBONATE
     Dosage: UNK
  2. LOPERAMIDE [Concomitant]
     Active Substance: LOPERAMIDE
     Dosage: 2 MG
  3. VITAMIN D3 [Concomitant]
     Active Substance: CHOLECALCIFEROL
     Dosage: 2000 IU
  4. ALBUTEROL [SALBUTAMOL] [Concomitant]
     Active Substance: ALBUTEROL
     Dosage: UNK
  5. XELJANZ [Suspect]
     Active Substance: TOFACITINIB CITRATE
     Indication: RHEUMATOID ARTHRITIS
     Dosage: 5 MG, 2X/DAY
     Route: 048
     Dates: start: 201806, end: 201904
  6. ATENOLOL. [Concomitant]
     Active Substance: ATENOLOL
     Dosage: 50 MG
  7. PROLIA [Concomitant]
     Active Substance: DENOSUMAB
     Indication: OSTEOPOROSIS
     Dosage: UNK, (SYRINGE)
  8. XELJANZ [Suspect]
     Active Substance: TOFACITINIB CITRATE
     Dosage: 5 MG, 2X/DAY
     Route: 048
     Dates: start: 20200317
  9. OFEV [Suspect]
     Active Substance: NINTEDANIB
     Dosage: 150 MG

REACTIONS (21)
  - Hepatic cancer [Unknown]
  - Infection [Unknown]
  - Influenza [Unknown]
  - Peripheral swelling [Unknown]
  - Cough [Unknown]
  - Abdominal discomfort [Unknown]
  - Weight decreased [Unknown]
  - Liver function test increased [Unknown]
  - Pancreatic disorder [Unknown]
  - Pancreatic carcinoma [Unknown]
  - Asthenia [Unknown]
  - Blood glucose increased [Unknown]
  - Cataract [Unknown]
  - Productive cough [Unknown]
  - Pneumonia [Unknown]
  - Hepatic enzyme increased [Unknown]
  - Fatigue [Unknown]
  - Diarrhoea [Unknown]
  - Liver disorder [Unknown]
  - Decreased appetite [Unknown]
  - Dyspnoea exertional [Unknown]

NARRATIVE: CASE EVENT DATE: 2018
